FAERS Safety Report 14910503 (Version 1)
Quarter: 2018Q2

REPORT INFORMATION
  Report Type: Report from Study
  Country: BR (occurrence: BR)
  Receive Date: 20180517
  Receipt Date: 20180517
  Transmission Date: 20180711
  Serious: Yes (Death, Other)
  Sender: FDA-Public Use
  Company Number: BR-BAYER-2017-132131

PATIENT
  Age: 28 Year
  Sex: Male

DRUGS (2)
  1. NEXAVAR [Suspect]
     Active Substance: SORAFENIB
     Dosage: 400 MG, BID
     Route: 048
     Dates: start: 201706, end: 201706
  2. CARISOPRODOL. [Concomitant]
     Active Substance: CARISOPRODOL
     Indication: PAIN
     Route: 048

REACTIONS (6)
  - Abdominal pain [None]
  - Death [Fatal]
  - Nausea [None]
  - Dyspnoea [None]
  - Abdominal discomfort [None]
  - Decreased appetite [None]

NARRATIVE: CASE EVENT DATE: 201706
